FAERS Safety Report 7792367-1 (Version None)
Quarter: 2011Q4

REPORT INFORMATION
  Report Type: 
  Country: None (occurrence: None)
  Receive Date: 20111003
  Receipt Date: 20110927
  Transmission Date: 20120403
  Serious: Yes (Other)
  Sender: FDA-Public Use
  Company Number: PHEH2011US01508

PATIENT
  Sex: Male
  Weight: 66 kg

DRUGS (4)
  1. EXJADE [Suspect]
     Indication: SERUM FERRITIN INCREASED
     Dosage: 1000 MG, BID
     Route: 048
     Dates: start: 20110730
  2. EXJADE [Suspect]
     Dosage: 1000 MG, QD
     Route: 048
  3. EXJADE [Suspect]
     Dosage: 500 MG, BID
     Route: 048
     Dates: end: 20110817
  4. OXYCODONE HCL [Concomitant]
     Indication: PAIN
     Dosage: 10 MG, PRN
     Route: 048
     Dates: start: 20110101

REACTIONS (5)
  - AMBLYOPIA [None]
  - LENTICULAR OPACITIES [None]
  - INCREASED UPPER AIRWAY SECRETION [None]
  - OCULAR DISCOMFORT [None]
  - EYE HAEMORRHAGE [None]
